FAERS Safety Report 7319844-1 (Version None)
Quarter: 2011Q1

REPORT INFORMATION
  Report Type: 
  Country: None (occurrence: None)
  Receive Date: 20110228
  Receipt Date: 20101021
  Transmission Date: 20110831
  Serious: No
  Sender: FDA-Public Use
  Company Number: A0888044A

PATIENT
  Age: 21 Year
  Sex: Male

DRUGS (4)
  1. DEPAKOTE [Concomitant]
  2. LAMICTAL [Suspect]
     Dosage: 300MG VARIABLE DOSE
     Route: 048
     Dates: start: 20100601
  3. ZYRTEC [Concomitant]
  4. LAMICTAL [Suspect]
     Dosage: 150MG TWICE PER DAY
     Route: 048
     Dates: start: 19971001

REACTIONS (1)
  - LYMPHADENOPATHY [None]
